FAERS Safety Report 14027935 (Version 1)
Quarter: 2017Q3

REPORT INFORMATION
  Report Type: Spontaneous
  Country: DK (occurrence: DK)
  Receive Date: 20170929
  Receipt Date: 20170929
  Transmission Date: 20171128
  Serious: Yes (Other)
  Sender: FDA-Public Use
  Company Number: DK-TEVA-808278ACC

PATIENT
  Age: 34 Year
  Sex: Male
  Weight: 115 kg

DRUGS (3)
  1. IBUPROFEN ^ORIFARM^ [Concomitant]
     Indication: BACK PAIN
     Route: 048
     Dates: start: 20170401, end: 20170430
  2. TRAMADOL ^ACTAVIS^ [Suspect]
     Active Substance: TRAMADOL
     Indication: BACK PAIN
     Dosage: 150 MILLIGRAM DAILY;
     Route: 048
     Dates: start: 20170407, end: 20170414
  3. PAMOL [Concomitant]
     Active Substance: ACETAMINOPHEN
     Indication: BACK PAIN
     Route: 048
     Dates: start: 20170401, end: 20170430

REACTIONS (3)
  - Dependence [Recovered/Resolved]
  - Restless legs syndrome [Recovered/Resolved]
  - Insomnia [Recovered/Resolved]

NARRATIVE: CASE EVENT DATE: 20170412
